FAERS Safety Report 6027339-0 (Version None)
Quarter: 2009Q1

REPORT INFORMATION
  Report Type: 
  Country: None (occurrence: None)
  Receive Date: 20090105
  Receipt Date: 20081222
  Transmission Date: 20090719
  Serious: Yes (Death)
  Sender: FDA-Public Use
  Company Number: B0550586A

PATIENT
  Sex: Male

DRUGS (3)
  1. ABACAVIR SULFATE/LAMIVUDINE [Suspect]
     Indication: DRUG USE FOR UNKNOWN INDICATION
     Route: 065
     Dates: start: 20080101
  2. DISPERIN [Concomitant]
  3. INSULIN [Concomitant]

REACTIONS (1)
  - SUDDEN DEATH [None]
